FAERS Safety Report 9630679 (Version 2)
Quarter: 2013Q4

REPORT INFORMATION
  Report Type: Spontaneous
  Country: US (occurrence: None)
  Receive Date: 20131016
  Receipt Date: 20131024
  Transmission Date: 20140711
  Serious: Yes (Congenital Anomaly)
  Sender: FDA-Public Use
  Company Number: ADR-2013H2167

PATIENT
  Sex: 0

DRUGS (4)
  1. LAMIVUDINE AND ZIDOVUDINE [Suspect]
     Dosage: 2 TABLETS
     Dates: start: 20110624
  2. RITONAVIR (NORVIR) [Concomitant]
  3. ATAZANAVIR SULFATE (REYATAZ) [Concomitant]
  4. ATAZANAVIR SULFATE (REYATAZ) [Concomitant]

REACTIONS (1)
  - Cryptorchism [None]
